FAERS Safety Report 5535454-0 (Version None)
Quarter: 2007Q4

REPORT INFORMATION
  Report Type: 
  Country: None (occurrence: None)
  Receive Date: 20071120
  Receipt Date: 20070815
  Transmission Date: 20080405
  Serious: No
  Sender: FDA-Public Use
  Company Number: WAES 0708USA02797

PATIENT
  Sex: 0

DRUGS (2)
  1. JANUVIA [Suspect]
     Indication: DIABETES MELLITUS
     Dosage: 100 MG DAILY PO
     Route: 048
  2. AMARYL [Concomitant]

REACTIONS (4)
  - ADVERSE EVENT [None]
  - ASTHENIA [None]
  - DIZZINESS [None]
  - NAUSEA [None]
